FAERS Safety Report 7248040-1 (Version None)
Quarter: 2011Q1

REPORT INFORMATION
  Report Type: 
  Country: None (occurrence: None)
  Receive Date: 20110127
  Receipt Date: 20100115
  Transmission Date: 20110831
  Serious: No
  Sender: FDA-Public Use
  Company Number: US-MYLANLABS-2010S1000874

PATIENT
  Age: 34 Year
  Sex: Male

DRUGS (3)
  1. PHENYTOIN SODIUM CAP [Suspect]
     Route: 048
  2. METOPROLOL [Concomitant]
     Route: 048
  3. PHENYTOIN SODIUM CAP [Suspect]
     Indication: CONVULSION
     Route: 048

REACTIONS (3)
  - FALL [None]
  - DIZZINESS [None]
  - LACERATION [None]
